FAERS Safety Report 20920957 (Version 1)
Quarter: 2022Q2

REPORT INFORMATION
  Report Type: Spontaneous
  Country: US (occurrence: US)
  Receive Date: 20220606
  Receipt Date: 20220606
  Transmission Date: 20220720
  Serious: No
  Sender: FDA-Public Use
  Company Number: US-TARO PHARMACEUTICALS USA INC.-2022TAR00543

PATIENT

DRUGS (2)
  1. DESOXIMETASONE [Suspect]
     Active Substance: DESOXIMETASONE
     Indication: Pruritus
     Dosage: UNK, BID
     Route: 061
  2. DESOXIMETASONE [Suspect]
     Active Substance: DESOXIMETASONE
     Dosage: UNK, QD
     Route: 061

REACTIONS (3)
  - Product use issue [Unknown]
  - Intentional product use issue [Unknown]
  - Drug ineffective [Unknown]
